FAERS Safety Report 8391905-8 (Version None)
Quarter: 2012Q2

REPORT INFORMATION
  Report Type: 
  Country: None (occurrence: None)
  Receive Date: 20120529
  Receipt Date: 20120111
  Transmission Date: 20120825
  Serious: Yes (Other)
  Sender: FDA-Public Use
  Company Number: DE-GLAXOSMITHKLINE-B0684708A

PATIENT
  Age: 70 Year
  Sex: Female

DRUGS (1)
  1. CLOBETASOL PROPIONATE [Suspect]
     Indication: WOUND
     Route: 061
     Dates: start: 20100922

REACTIONS (6)
  - APPLICATION SITE URTICARIA [None]
  - OFF LABEL USE [None]
  - APPLICATION SITE ERYTHEMA [None]
  - APPLICATION SITE PRURITUS [None]
  - HYPERSENSITIVITY [None]
  - PRODUCT QUALITY ISSUE [None]
